FAERS Safety Report 8070038-4 (Version None)
Quarter: 2012Q1

REPORT INFORMATION
  Report Type: 
  Country: None (occurrence: None)
  Receive Date: 20120119
  Receipt Date: 20120109
  Transmission Date: 20120608
  Serious: Yes (Hospitalization, Other)
  Sender: FDA-Public Use
  Company Number: AUR-APL-2012-00428

PATIENT
  Age: 90 Year
  Sex: Male

DRUGS (10)
  1. LOSARTAN POTASSIUM [Concomitant]
  2. TRAMADOL HCL [Concomitant]
  3. CEFTRIAXONE [Suspect]
     Indication: GOUT
     Dosage: (2 GM, 1 D), INTRAVENOUS
     Route: 042
  4. CEFTRIAXONE [Suspect]
     Indication: ARTHRITIS BACTERIAL
     Dosage: (2 GM, 1 D), INTRAVENOUS
     Route: 042
  5. PREDNISONE TAB [Concomitant]
  6. ASPIRIN [Concomitant]
  7. VANCOMYCIN [Concomitant]
  8. METOPROLOL TARTRATE [Concomitant]
  9. HYDRALAZINE HCL [Concomitant]
  10. SIMVASTATIN [Concomitant]

REACTIONS (3)
  - AUTOIMMUNE HEPATITIS [None]
  - ACUTE HEPATIC FAILURE [None]
  - HEPATOTOXICITY [None]
